FAERS Safety Report 9197532 (Version 1)
Quarter: 2013Q1

REPORT INFORMATION
  Report Type: Spontaneous
  Country: US (occurrence: None)
  Receive Date: 20120709
  Receipt Date: 20120709
  Transmission Date: 20140127
  Serious: Yes (Hospitalization)
  Sender: FDA-Public Use
  Company Number: PHEH2012US05606

PATIENT
  Age: 37 Year
  Sex: Female
  Weight: 85.7 kg

DRUGS (5)
  1. GLEEVEC (IMATINIB) UNKNOWN [Suspect]
     Indication: CHRONIC MYELOID LEUKAEMIA
     Route: 048
     Dates: start: 20110922, end: 20110926
  2. DEPAKOTE (VALPROATE SEMISODIUM) [Concomitant]
  3. CYMBALTA (DULOXETINE HYDROCHLORIDE) [Concomitant]
  4. HALOPERIDOL (HALOPERIDOL) (HALOPERIDOEL) [Concomitant]
  5. TRAZODONE (TRAZODONE) (TRAZODONE) [Concomitant]

REACTIONS (5)
  - Abdominal pain [None]
  - Nausea [None]
  - Vomiting [None]
  - Hypokinesia [None]
  - Dehydration [None]
